FAERS Safety Report 19465339 (Version 1)
Quarter: 2021Q2

REPORT INFORMATION
  Report Type: Spontaneous
  Country: IL (occurrence: IL)
  Receive Date: 20210624
  Receipt Date: 20210624
  Transmission Date: 20210717
  Serious: Yes (Other)
  Sender: FDA-Public Use
  Company Number: IL-TAKEDA-2021TUS038410

PATIENT
  Age: 80 Year
  Sex: Female

DRUGS (10)
  1. HUMAN NORMAL IMMUNOGLOBULIN [Suspect]
     Active Substance: HUMAN IMMUNOGLOBULIN G
     Indication: THROMBOCYTOPENIA
     Dosage: 30 GRAM
     Route: 042
  2. INTRATECT [Concomitant]
     Active Substance: HUMAN IMMUNOGLOBULIN G
     Dosage: 50 MG/ML
     Route: 065
  3. L?THYROXINE [Concomitant]
     Active Substance: LEVOTHYROXINE
  4. ASPIRIN. [Concomitant]
     Active Substance: ASPIRIN
  5. MAGNESIUM CITRATE. [Concomitant]
     Active Substance: MAGNESIUM CITRATE
  6. SANDOGLOBULIN [Concomitant]
     Active Substance: HUMAN IMMUNOGLOBULIN G
  7. EZETIMIBE. [Concomitant]
     Active Substance: EZETIMIBE
  8. BISOPROLOL [Concomitant]
     Active Substance: BISOPROLOL
  9. ATORVASTATIN [Concomitant]
     Active Substance: ATORVASTATIN
  10. RITUXIMAB. [Concomitant]
     Active Substance: RITUXIMAB
     Indication: PRODUCT USED FOR UNKNOWN INDICATION

REACTIONS (4)
  - Thrombocytopenia [Unknown]
  - Dyspnoea [Unknown]
  - Chills [Unknown]
  - Embolism [Unknown]
